FAERS Safety Report 21721096 (Version 1)
Quarter: 2022Q4

REPORT INFORMATION
  Report Type: Spontaneous
  Country: US (occurrence: None)
  Receive Date: 20221212
  Receipt Date: 20221212
  Transmission Date: 20230113
  Serious: Yes (Disabling)
  Sender: FDA-Public Use
  Company Number: None

PATIENT
  Age: 45 Year
  Sex: Female
  Weight: 81.9 kg

DRUGS (2)
  1. PAXLOVID [Suspect]
     Active Substance: NIRMATRELVIR\RITONAVIR
     Indication: COVID-19
     Dosage: OTHER QUANTITY : 3 TABLET(S);?FREQUENCY : TWICE A DAY;?
     Route: 048
     Dates: start: 20221208, end: 20221211
  2. Daily women^s Multi-vitamins [Concomitant]

REACTIONS (10)
  - Dry mouth [None]
  - Dyspnoea [None]
  - Lethargy [None]
  - Headache [None]
  - Diarrhoea [None]
  - Myalgia [None]
  - Arthralgia [None]
  - Paraesthesia [None]
  - Paraesthesia [None]
  - Dysgeusia [None]

NARRATIVE: CASE EVENT DATE: 20221208
